FAERS Safety Report 5979635-0 (Version None)
Quarter: 2008Q4

REPORT INFORMATION
  Report Type: 
  Country: None (occurrence: None)
  Receive Date: 20081204
  Receipt Date: 20081125
  Transmission Date: 20090506
  Serious: Yes (Death)
  Sender: FDA-Public Use
  Company Number: ES-GENENTECH-272576

PATIENT
  Sex: Male

DRUGS (3)
  1. TRASTUZUMAB [Suspect]
     Indication: TRANSITIONAL CELL CARCINOMA
     Dosage: 248 MG, 1/WEEK
     Route: 042
     Dates: start: 20081119
  2. GEMCITABINE HCL [Suspect]
     Indication: TRANSITIONAL CELL CARCINOMA
     Dosage: 1670 MG, UNK
     Route: 042
  3. CISPLATIN [Suspect]
     Indication: TRANSITIONAL CELL CARCINOMA
     Dosage: 125.5 MG, Q4W
     Route: 042

REACTIONS (1)
  - PULMONARY EMBOLISM [None]
